FAERS Safety Report 10565488 (Version 1)
Quarter: 2014Q4

REPORT INFORMATION
  Report Type: Spontaneous
  Country: US (occurrence: US)
  Receive Date: 20141105
  Receipt Date: 20141105
  Transmission Date: 20150529
  Serious: No
  Sender: FDA-Public Use
  Company Number: US-PFIZER INC-2014302188

PATIENT
  Age: 71 Year
  Sex: Female

DRUGS (4)
  1. VENLAFAXINE HCL [Suspect]
     Active Substance: VENLAFAXINE HYDROCHLORIDE
     Indication: DEPRESSION
     Dosage: 225 MG, DAILY
     Dates: start: 20141015
  2. RESTORIL [Suspect]
     Active Substance: TEMAZEPAM
     Indication: MIDDLE INSOMNIA
  3. VERAPAMIL [Concomitant]
     Active Substance: VERAPAMIL HYDROCHLORIDE
     Indication: PALPITATIONS
     Dosage: 120MG IN THE MORNING AND 180MG AT NIGHT
  4. RESTORIL [Suspect]
     Active Substance: TEMAZEPAM
     Indication: INITIAL INSOMNIA
     Dosage: 15 MG, DAILY (AT BEDTIME)
     Route: 048
     Dates: start: 20141028

REACTIONS (2)
  - Heart rate increased [Unknown]
  - Blood pressure increased [Unknown]

NARRATIVE: CASE EVENT DATE: 20141029
